FAERS Safety Report 10672273 (Version 1)
Quarter: 2014Q4

REPORT INFORMATION
  Report Type: Spontaneous
  Country: US (occurrence: None)
  Receive Date: 20141222
  Receipt Date: 20141222
  Transmission Date: 20150529
  Serious: Yes (Other)
  Sender: FDA-Public Use
  Company Number: None

PATIENT
  Age: 3 Year
  Sex: Female

DRUGS (1)
  1. 365 COUGH EASE FOR KIDS WHOLE FOOD [Suspect]
     Active Substance: HOMEOPATHICS
     Indication: COUGH
     Dosage: 1 TEASPOON EVERY 2 HOURS, EVERY 2 HOURS, TAKEN BY MOUTH
     Route: 048
     Dates: start: 20141130, end: 20141205

REACTIONS (4)
  - Abdominal pain [None]
  - Faeces pale [None]
  - Diarrhoea [None]
  - Unevaluable event [None]

NARRATIVE: CASE EVENT DATE: 20141205
